FAERS Safety Report 12160996 (Version 1)
Quarter: 2016Q1

REPORT INFORMATION
  Report Type: Spontaneous
  Country: US (occurrence: US)
  Receive Date: 20160308
  Receipt Date: 20160308
  Transmission Date: 20160526
  Serious: Yes (Other)
  Sender: FDA-Public Use
  Company Number: US-EMD SERONO-7064444

PATIENT
  Sex: Female

DRUGS (1)
  1. REBIF [Suspect]
     Active Substance: INTERFERON BETA-1A
     Indication: MULTIPLE SCLEROSIS
     Route: 058
     Dates: start: 20070501

REACTIONS (5)
  - Fall [Unknown]
  - Scoliosis [Unknown]
  - Osteoarthritis [Not Recovered/Not Resolved]
  - Nerve root compression [Not Recovered/Not Resolved]
  - Ligament rupture [Unknown]
